FAERS Safety Report 5919664-6 (Version None)
Quarter: 2008Q3

REPORT INFORMATION
  Report Type: 
  Country: None (occurrence: None)
  Receive Date: 20080909
  Receipt Date: 20080529
  Transmission Date: 20090109
  Serious: Yes (Hospitalization)
  Sender: FDA-Public Use
  Company Number: 163-20785-08051675

PATIENT
  Age: 86 Year
  Sex: Male

DRUGS (2)
  1. THALOMID [Suspect]
     Indication: MULTIPLE MYELOMA
     Dosage: 100 MG, 2 IN 1 D, ORAL ; 200 MG, 4 IN 1 D, ORAL
     Route: 048
     Dates: start: 20050927, end: 20050101
  2. THALOMID [Suspect]
     Indication: MULTIPLE MYELOMA
     Dosage: 100 MG, 2 IN 1 D, ORAL ; 200 MG, 4 IN 1 D, ORAL
     Route: 048
     Dates: start: 20050425

REACTIONS (2)
  - DRUG INTOLERANCE [None]
  - PNEUMONIA [None]
